FAERS Safety Report 8102055-X (Version None)
Quarter: 2012Q1

REPORT INFORMATION
  Report Type: 
  Country: None (occurrence: None)
  Receive Date: 20120131
  Receipt Date: 20120127
  Transmission Date: 20120608
  Serious: Yes (Life-Threatening, Hospitalization)
  Sender: FDA-Public Use
  Company Number: DE-B.I. PHARMACEUTICALS,INC./RIDGEFIELD-2012-DE-00271DE

PATIENT
  Sex: Female
  Weight: 62 kg

DRUGS (2)
  1. PRADAXA [Suspect]
     Indication: ATRIAL FIBRILLATION
     Dosage: 2 ANZ
     Dates: start: 20111209, end: 20111214
  2. PRADAXA [Suspect]
     Indication: CEREBRAL ISCHAEMIA

REACTIONS (3)
  - CEREBRAL INFARCTION [None]
  - GASTRIC ULCER [None]
  - TRANSIENT ISCHAEMIC ATTACK [None]
